FAERS Safety Report 22370685 (Version 1)
Quarter: 2023Q2

REPORT INFORMATION
  Report Type: Spontaneous
  Country: BE (occurrence: BE)
  Receive Date: 20230526
  Receipt Date: 20230526
  Transmission Date: 20230722
  Serious: Yes (Death, Other)
  Sender: FDA-Public Use
  Company Number: BE-002147023-NVSC2023BE120303

PATIENT
  Sex: Female

DRUGS (1)
  1. ASCIMINIB [Suspect]
     Active Substance: ASCIMINIB
     Indication: Product used for unknown indication
     Dosage: 20 MG X2
     Route: 065

REACTIONS (2)
  - Death [Fatal]
  - Electrocardiogram QT prolonged [Unknown]
